FAERS Safety Report 11108916 (Version 1)
Quarter: 2015Q2

REPORT INFORMATION
  Report Type: Spontaneous
  Country: GB (occurrence: GB)
  Receive Date: 20150513
  Receipt Date: 20150513
  Transmission Date: 20150821
  Serious: Yes (Other)
  Sender: FDA-Public Use
  Company Number: GB-TEVA-560751ACC

PATIENT
  Age: 38 Year
  Sex: Female

DRUGS (1)
  1. GABAPENTIN. [Suspect]
     Active Substance: GABAPENTIN
     Indication: PAIN
     Dosage: 2700 MILLIGRAM DAILY; 900 MG, 3X/DAY (3 TIMES A DAY)

REACTIONS (4)
  - Sedation [Unknown]
  - Overdose [Unknown]
  - Extrapyramidal disorder [Unknown]
  - Cholinergic syndrome [Unknown]
